FAERS Safety Report 19086627 (Version 6)
Quarter: 2022Q3

REPORT INFORMATION
  Report Type: Report from Study
  Country: FR (occurrence: FR)
  Receive Date: 20210402
  Receipt Date: 20220802
  Transmission Date: 20221027
  Serious: Yes (Other)
  Sender: FDA-Public Use
  Company Number: FR-PFIZER INC-2021320098

PATIENT
  Age: 77 Year
  Sex: Female
  Weight: 87 kg

DRUGS (2)
  1. IBRANCE [Suspect]
     Active Substance: PALBOCICLIB
     Dosage: 125 MG, 1X/DAY (21DAYS/MONTH)
     Dates: start: 20191206, end: 20201110
  2. IBRANCE [Suspect]
     Active Substance: PALBOCICLIB
     Dosage: 100 MG, 1X/DAY (21DAYS/MONTH)
     Dates: start: 20201124, end: 20201203

REACTIONS (4)
  - Chronic kidney disease [Recovering/Resolving]
  - Fatigue [Unknown]
  - Dyspnoea [Unknown]
  - COVID-19 [Recovered/Resolved]

NARRATIVE: CASE EVENT DATE: 20201001
